FAERS Safety Report 21222803 (Version 1)
Quarter: 2022Q3

REPORT INFORMATION
  Report Type: Report from Study
  Country: GB (occurrence: GB)
  Receive Date: 20220817
  Receipt Date: 20220817
  Transmission Date: 20221027
  Serious: Yes (Hospitalization)
  Sender: FDA-Public Use
  Company Number: GB-ROCHE-3138986

PATIENT
  Age: 52 Year
  Sex: Female
  Weight: 59.6 kg

DRUGS (17)
  1. CARBOPLATIN [Suspect]
     Active Substance: CARBOPLATIN
     Indication: Small cell lung cancer extensive stage
     Dosage: THERAPY END DATE : NOT ASKED, UNIT DOSE : 630 MG,
     Route: 065
     Dates: start: 20220616
  2. ETOPOSIDE [Suspect]
     Active Substance: ETOPOSIDE
     Indication: Small cell lung cancer extensive stage
     Dosage: UNIT DOSE : 164 MG, THERAPY END DATE : NOT ASKED
     Route: 042
     Dates: start: 20220616
  3. ATEZOLIZUMAB [Suspect]
     Active Substance: ATEZOLIZUMAB
     Indication: Small cell lung cancer extensive stage
     Dosage: DOSE LAST STUDY DRUG ADMIN PRIOR AE IS 1200 MG, THERAPY END DATE : NOT ASKED, UNIT DOSE : 1200 MG, F
     Route: 042
     Dates: start: 20220616
  4. ETOPOSIDE [Suspect]
     Active Substance: ETOPOSIDE
     Indication: Product used for unknown indication
     Dosage: THERAPY END DATE : NOT ASKED, UNIT DOSE : 350 MG
     Route: 048
     Dates: start: 20220618
  5. ALLOPURINOL [Concomitant]
     Active Substance: ALLOPURINOL
     Indication: Product used for unknown indication
     Dosage: FREQUENCY ; 1, FREQUENCY TIME : 1 DAYS
     Route: 065
     Dates: start: 20220616
  6. CIPROFLOXACIN [Concomitant]
     Active Substance: CIPROFLOXACIN
     Indication: Product used for unknown indication
     Route: 065
     Dates: start: 20220616
  7. COCODAMOL [Concomitant]
     Active Substance: ACETAMINOPHEN\CODEINE PHOSPHATE
     Indication: Product used for unknown indication
     Dosage: 30/500 MG,  FREQUENCY ; 1, FREQUENCY TIME : 1 AS REQUIRED
     Route: 065
  8. DEXAMETHASONE [Concomitant]
     Active Substance: DEXAMETHASONE
     Indication: Product used for unknown indication
     Dosage: FREQUENCY ; 1, FREQUENCY TIME : 1 DAYS, THERAPY DURATION: 1 DAYS
     Route: 042
     Dates: start: 20220616, end: 20220616
  9. DEXAMETHASONE [Concomitant]
     Active Substance: DEXAMETHASONE
     Route: 065
     Dates: start: 20220616
  10. DEXAMETHASONE [Concomitant]
     Active Substance: DEXAMETHASONE
     Dosage: FREQUENCY ; 1, FREQUENCY TIME : 1 DAYS, THERAPY DURATION: 8 DAYS
     Route: 065
     Dates: start: 20220610, end: 20220617
  11. DOCUSATE SODIUM [Concomitant]
     Active Substance: DOCUSATE SODIUM
     Indication: Product used for unknown indication
     Dosage: FREQUENCY ; 1, FREQUENCY TIME : 1 AS REQUIRED
     Route: 065
     Dates: start: 20220614
  12. LANSOPRAZOLE [Concomitant]
     Active Substance: LANSOPRAZOLE
     Indication: Product used for unknown indication
     Dosage: FREQUENCY ; 1, FREQUENCY TIME : 1 DAYS, THERAPY DURATION: 8 DAYS
     Route: 065
     Dates: start: 20220610, end: 20220617
  13. METOCLOPRAMIDE [Concomitant]
     Active Substance: METOCLOPRAMIDE
     Indication: Product used for unknown indication
     Route: 065
     Dates: start: 20220616
  14. ONDANSETRON [Concomitant]
     Active Substance: ONDANSETRON
     Indication: Product used for unknown indication
     Dosage: FREQUENCY ; 1, FREQUENCY TIME : 1 AS REQUIRED
     Route: 065
     Dates: start: 20220616
  15. ONDANSETRON [Concomitant]
     Active Substance: ONDANSETRON
     Dosage: FREQUENCY ; 1, FREQUENCY TIME : 1 AS REQUIRED, THERAPY DURATION: 2 DAYS
     Route: 042
     Dates: start: 20220616, end: 20220617
  16. PROMETHAZINE [Concomitant]
     Active Substance: PROMETHAZINE HYDROCHLORIDE
     Indication: Product used for unknown indication
     Dosage: FREQUENCY ; 1, FREQUENCY TIME : 1 AS REQUIRED
     Route: 065
  17. SENNA [Concomitant]
     Active Substance: SENNA LEAF\SENNOSIDES\SENNOSIDES A AND B
     Indication: Product used for unknown indication
     Dosage: FREQUENCY ; 1, FREQUENCY TIME : 1 AS REQUIRED
     Route: 065
     Dates: start: 20220614

REACTIONS (2)
  - Chest pain [Recovered/Resolved]
  - Diarrhoea [Recovered/Resolved]

NARRATIVE: CASE EVENT DATE: 20220711
